FAERS Safety Report 21009918 (Version 1)
Quarter: 2022Q2

REPORT INFORMATION
  Report Type: Spontaneous
  Country: AU (occurrence: AU)
  Receive Date: 20220627
  Receipt Date: 20220627
  Transmission Date: 20220721
  Serious: Yes (Other)
  Sender: FDA-Public Use
  Company Number: AU-PFIZER INC-2012099707

PATIENT
  Age: 17 Year
  Sex: Female
  Weight: 40 kg

DRUGS (8)
  1. LEVETIRACETAM [Suspect]
     Active Substance: LEVETIRACETAM
     Indication: Status epilepticus
     Dosage: UNK
  2. PHENOBARBITAL [Suspect]
     Active Substance: PHENOBARBITAL
     Dosage: UNK
  3. CLOZAPINE [Suspect]
     Active Substance: CLOZAPINE
     Dosage: UNK
  4. OXCARBAZEPINE [Suspect]
     Active Substance: OXCARBAZEPINE
  5. CLONAZEPAM [Suspect]
     Active Substance: CLONAZEPAM
  6. PHENOBARBITAL [Suspect]
     Active Substance: PHENOBARBITAL
  7. VALPROATE [Suspect]
     Active Substance: VALPROIC ACID
  8. VALPROIC ACID [Suspect]
     Active Substance: VALPROIC ACID

REACTIONS (2)
  - Drug ineffective [Unknown]
  - Status epilepticus [Unknown]
